FAERS Safety Report 23237882 (Version 1)
Quarter: 2023Q4

REPORT INFORMATION
  Report Type: Spontaneous
  Country: NL (occurrence: NL)
  Receive Date: 20231128
  Receipt Date: 20231128
  Transmission Date: 20240109
  Serious: Yes (Hospitalization)
  Sender: FDA-Public Use
  Company Number: None

PATIENT
  Age: 77 Year
  Sex: Female
  Weight: 60.6 kg

DRUGS (5)
  1. HALDOL [Suspect]
     Active Substance: HALOPERIDOL
     Indication: Delirium
     Dosage: 2DD10 DRUPPELS
     Route: 065
     Dates: start: 20230907
  2. CINACALCET [Concomitant]
     Active Substance: CINACALCET
     Dosage: TABLET, 30 MG (MILLIGRAM)
  3. CLOPIDOGREL [Concomitant]
     Active Substance: CLOPIDOGREL BISULFATE
     Dosage: TABLET, 75 MG (MILLIGRAM)
  4. ESOMEPRAZOLE [Concomitant]
     Active Substance: ESOMEPRAZOLE
     Dosage: CAPSULE, 40 MG (MILLIGRAM)
  5. MOVICOLON [Concomitant]
     Active Substance: POLYETHYLENE GLYCOL 3350\POTASSIUM CHLORIDE\SODIUM BICARBONATE\SODIUM CHLORIDE
     Dosage: POEDER VOOR DRANK

REACTIONS (2)
  - Muscle rigidity [Unknown]
  - Bradyphrenia [Unknown]
